FAERS Safety Report 5650585-2 (Version None)
Quarter: 2008Q1

REPORT INFORMATION
  Report Type: 
  Country: None (occurrence: None)
  Receive Date: 20080305
  Receipt Date: 20080226
  Transmission Date: 20080703
  Serious: Yes (Hospitalization)
  Sender: FDA-Public Use
  Company Number: ES-JNJFOC-20080206617

PATIENT

DRUGS (2)
  1. REMICADE [Suspect]
     Dosage: 1 INFUSION ON AN UNKNOWN DATE
     Route: 042
  2. REMICADE [Suspect]
     Indication: PSORIATIC ARTHROPATHY
     Route: 042

REACTIONS (1)
  - DIVERTICULITIS [None]
